FAERS Safety Report 9478039 (Version 3)
Quarter: 2013Q4

REPORT INFORMATION
  Report Type: Spontaneous
  Country: BR (occurrence: BR)
  Receive Date: 20130827
  Receipt Date: 20131002
  Transmission Date: 20140711
  Serious: Yes (Hospitalization, Other)
  Sender: FDA-Public Use
  Company Number: PHHY2013BR092231

PATIENT
  Sex: Male

DRUGS (9)
  1. ZOMETA [Suspect]
     Indication: PROSTATE CANCER METASTATIC
     Dosage: 4 MG,  MONTHLY
     Dates: start: 2005, end: 201201
  2. ZOMETA [Suspect]
     Indication: METASTASES TO BONE
  3. ZOLADEX [Concomitant]
     Dosage: UNK UKN, TRIMESTRAL
     Dates: start: 2005, end: 2012
  4. ZOLADEX [Concomitant]
     Dosage: UNK UKN, UNK
  5. DIOVAN [Concomitant]
     Dosage: 320 MG, DAILY
  6. ACETYLSALICYLIC ACID [Concomitant]
     Dosage: 100 MG, UNK
  7. DOCETAXEL [Concomitant]
     Dosage: UNK UKN, UNK
     Dates: start: 201202
  8. DOCETAXEL [Concomitant]
     Dosage: UNK UKN, UNK
  9. ABIRATERONE [Concomitant]
     Dosage: 1000 MG, DAY
     Dates: start: 201209

REACTIONS (10)
  - Pneumonia [Not Recovered/Not Resolved]
  - Pulmonary fibrosis [Not Recovered/Not Resolved]
  - Osteonecrosis of jaw [Not Recovered/Not Resolved]
  - Pain [Unknown]
  - Erythema [Unknown]
  - Swelling [Unknown]
  - Lymphadenopathy [Unknown]
  - Osteomyelitis [Unknown]
  - Oral pain [Unknown]
  - Exposed bone in jaw [Unknown]
